FAERS Safety Report 7323234-5 (Version None)
Quarter: 2011Q1

REPORT INFORMATION
  Report Type: 
  Country: None (occurrence: None)
  Receive Date: 20110217
  Receipt Date: 20110204
  Transmission Date: 20110831
  Serious: Yes (Other)
  Sender: FDA-Public Use
  Company Number: 026850

PATIENT
  Age: 73 Year
  Sex: Male

DRUGS (1)
  1. ROTIGOTINE (ROTIGOTINE) [Suspect]
     Indication: PARKINSON'S DISEASE
     Dosage: TRANSDERMAL
     Route: 062
     Dates: start: 20020101

REACTIONS (4)
  - OBSESSIVE THOUGHTS [None]
  - PATHOLOGICAL GAMBLING [None]
  - TREMOR [None]
  - SUICIDAL IDEATION [None]
